FAERS Safety Report 4882918-9 (Version None)
Quarter: 2005Q4

REPORT INFORMATION
  Report Type: 
  Country: None (occurrence: None)
  Receive Date: 20051201
  Receipt Date: 20050923
  Transmission Date: 20060501
  Serious: No
  Sender: FDA-Public Use
  Company Number: 2005PV002463

PATIENT
  Age: 89 Year
  Sex: Female
  Weight: 54.4316 kg

DRUGS (3)
  1. BYETTA [Suspect]
     Indication: DIABETES MELLITUS NON-INSULIN-DEPENDENT
     Dosage: SEE IMAGE
     Route: 058
     Dates: start: 20050812, end: 20050908
  2. BYETTA [Suspect]
     Indication: DIABETES MELLITUS NON-INSULIN-DEPENDENT
     Dosage: SEE IMAGE
     Route: 058
     Dates: start: 20050909
  3. NOVOLIN 70/30 [Concomitant]

REACTIONS (5)
  - ASTHENIA [None]
  - DECREASED APPETITE [None]
  - FATIGUE [None]
  - HYPERSOMNIA [None]
  - WEIGHT DECREASED [None]
